FAERS Safety Report 5709583-2 (Version None)
Quarter: 2008Q2

REPORT INFORMATION
  Report Type: 
  Country: None (occurrence: None)
  Receive Date: 20080418
  Receipt Date: 20080407
  Transmission Date: 20081010
  Serious: Yes (Death, Hospitalization)
  Sender: FDA-Public Use
  Company Number: IN-ROCHE-557301

PATIENT
  Age: 19 Year
  Sex: Male

DRUGS (2)
  1. TRETINOIN [Suspect]
     Route: 065
  2. TRETINOIN [Suspect]
     Dosage: REPORTED AS 'ATRA WAS RESTARTED AT 50% OF THE DOSE'.
     Route: 065

REACTIONS (2)
  - ILEAL PERFORATION [None]
  - RETINOIC ACID SYNDROME [None]
